FAERS Safety Report 8399113-1 (Version None)
Quarter: 2012Q1

REPORT INFORMATION
  Report Type: 
  Country: None (occurrence: None)
  Receive Date: 20120323
  Receipt Date: 20110330
  Transmission Date: 20120608
  Serious: Yes (Disabling, Other)
  Sender: FDA-Public Use
  Company Number: 163-21880-11010683

PATIENT
  Age: 51 Year
  Sex: Male
  Weight: 71.2147 kg

DRUGS (5)
  1. DECADRON [Concomitant]
  2. PENICILLIN [Concomitant]
  3. REVLIMID [Suspect]
     Indication: MULTIPLE MYELOMA
     Dosage: 10 MG, 1 IN 1 D, PO
     Route: 048
     Dates: start: 20100820, end: 20101227
  4. ZOMETA [Concomitant]
  5. LINEZOLID [Concomitant]

REACTIONS (3)
  - RASH PRURITIC [None]
  - RASH MACULO-PAPULAR [None]
  - HEADACHE [None]
